FAERS Safety Report 4923533-8 (Version None)
Quarter: 2006Q1

REPORT INFORMATION
  Report Type: 
  Country: None (occurrence: None)
  Receive Date: 20060227
  Receipt Date: 20060116
  Transmission Date: 20060701
  Serious: Yes (Other)
  Sender: FDA-Public Use
  Company Number: NO-NOVOPROD-250058

PATIENT
  Age: 44 Year
  Sex: Female

DRUGS (4)
  1. NOVORAPID FLEXPEN [Suspect]
     Indication: DIABETES MELLITUS INSULIN-DEPENDENT
     Dosage: 6 IU FOR EVENING MEAL
     Route: 058
  2. LEVAXIN [Concomitant]
  3. VITAMIN B-12 [Concomitant]
  4. INSULATARD NPH HUMAN [Concomitant]
     Indication: DIABETES MELLITUS INSULIN-DEPENDENT

REACTIONS (11)
  - DEVICE FAILURE [None]
  - FALL [None]
  - FATIGUE [None]
  - HEADACHE [None]
  - HUNGER [None]
  - HYPOGLYCAEMIA [None]
  - MALAISE [None]
  - MUSCLE SPASMS [None]
  - MYALGIA [None]
  - PHARMACEUTICAL PRODUCT COMPLAINT [None]
  - SYNCOPE [None]
